FAERS Safety Report 7275415 (Version 3)
Quarter: 2019Q4

REPORT INFORMATION
  Report Type: Report from Study
  Country: TW (occurrence: TW)
  Receive Date: 20100210
  Receipt Date: 20191212
  Transmission Date: 20200122
  Serious: Yes (Hospitalization)
  Sender: FDA-Public Use
  Company Number: PHHY2009TW30134

PATIENT
  Age: 19 Year
  Sex: Male
  Weight: 37.5 kg

DRUGS (8)
  1. CALCITRIOL. [Concomitant]
     Active Substance: CALCITRIOL
     Dosage: UNK UKN, UNK
     Route: 065
  2. BLOOD TRANSFUSION, AUXILIARY PRODUCTS [Concomitant]
     Active Substance: HUMAN RED BLOOD CELL
     Indication: THALASSAEMIA BETA
     Dosage: UNK UKN, UNK
     Route: 065
  3. DEFERASIROX. [Suspect]
     Active Substance: DEFERASIROX
     Indication: THALASSAEMIA BETA
     Dosage: 1250 MG/DAY
     Route: 048
     Dates: start: 200702
  4. DEFERASIROX. [Suspect]
     Active Substance: DEFERASIROX
     Indication: IRON OVERLOAD
     Dosage: 1250 MG/DAY
     Route: 048
     Dates: start: 20090320
  5. THYROXINE [Concomitant]
     Active Substance: LEVOTHYROXINE
     Indication: HYPOTHYROIDISM
     Dosage: UNK UKN, UNK
     Route: 065
  6. TESTOSTERONE. [Concomitant]
     Active Substance: TESTOSTERONE
     Dosage: UNK UKN, UNK
     Route: 065
  7. DEFERASIROX. [Suspect]
     Active Substance: DEFERASIROX
     Dosage: 35 MG/KG/DAY
     Route: 048
     Dates: end: 200911
  8. BLOOD TRANSFUSION, AUXILIARY PRODUCTS [Concomitant]
     Active Substance: HUMAN RED BLOOD CELL
     Dosage: UNK UKN, UNK
     Dates: start: 20090522

REACTIONS (49)
  - Hepatic encephalopathy [Not Recovered/Not Resolved]
  - Vomiting [Not Recovered/Not Resolved]
  - Renal tubular acidosis [Recovered/Resolved]
  - Metabolic acidosis [Recovered/Resolved]
  - Diarrhoea [Not Recovered/Not Resolved]
  - Brain oedema [Recovered/Resolved]
  - Reye^s syndrome [Recovered/Resolved]
  - Aspartate aminotransferase increased [Not Recovered/Not Resolved]
  - Hypocalcaemia [Recovered/Resolved]
  - Hypophosphataemia [Unknown]
  - Urine analysis abnormal [Recovered/Resolved]
  - Hypoglycaemia [Recovered/Resolved]
  - Neck pain [Recovered/Resolved]
  - Decreased appetite [Recovered/Resolved]
  - Fanconi syndrome [Recovered/Resolved]
  - Lethargy [Recovered/Resolved]
  - Fatigue [Unknown]
  - Sepsis [Unknown]
  - Blood bilirubin increased [Not Recovered/Not Resolved]
  - Ammonia increased [Not Recovered/Not Resolved]
  - Electrolyte imbalance [Recovered/Resolved]
  - Respiratory failure [Unknown]
  - Acute hepatic failure [Recovered/Resolved]
  - Bilirubin conjugated increased [Not Recovered/Not Resolved]
  - Coagulopathy [Not Recovered/Not Resolved]
  - Tachypnoea [Unknown]
  - Haemoglobin decreased [Not Recovered/Not Resolved]
  - Back pain [Unknown]
  - Hepatic enzyme increased [Not Recovered/Not Resolved]
  - Liver function test abnormal [Not Recovered/Not Resolved]
  - Alanine aminotransferase increased [Not Recovered/Not Resolved]
  - Discomfort [Not Recovered/Not Resolved]
  - Blood urea increased [Unknown]
  - Blood glucose fluctuation [Recovered/Resolved]
  - Thrombocytopenia [Unknown]
  - Pyrexia [Unknown]
  - Altered state of consciousness [Recovered/Resolved]
  - Tachycardia [Recovered/Resolved]
  - Cholestasis [Not Recovered/Not Resolved]
  - Renal impairment [Recovered/Resolved]
  - Hyperglycaemia [Recovered/Resolved]
  - Pneumothorax [Unknown]
  - Serum ferritin increased [Unknown]
  - Azotaemia [Recovered/Resolved]
  - International normalised ratio increased [Not Recovered/Not Resolved]
  - Dyspnoea [Unknown]
  - Hypersomnia [Unknown]
  - Stress ulcer [Recovered/Resolved]
  - Gastric haemorrhage [Unknown]

NARRATIVE: CASE EVENT DATE: 200905
